FAERS Safety Report 5524917-X (Version None)
Quarter: 2007Q4

REPORT INFORMATION
  Report Type: 
  Country: None (occurrence: None)
  Receive Date: 20071119
  Receipt Date: 20071112
  Transmission Date: 20080405
  Serious: Yes (Hospitalization, Disabling, Other)
  Sender: FDA-Public Use
  Company Number: 2002-09-0653

PATIENT
  Age: 42 Year
  Sex: Female
  Weight: 65.7716 kg

DRUGS (29)
  1. PEG-INTRON [Suspect]
     Indication: HEPATITIS C
     Dosage: 96 MCG;QW;SC
     Route: 058
     Dates: start: 20020301, end: 20020614
  2. REBETOL [Suspect]
     Indication: HEPATITIS C
     Dosage: 800 MG;QD;PO
     Route: 048
     Dates: start: 20020301, end: 20020614
  3. NORCO [Concomitant]
  4. FOLIC ACID [Concomitant]
  5. CELEXA [Concomitant]
  6. DALMANE [Concomitant]
  7. ZOLOFT [Concomitant]
  8. NORFLEX [Concomitant]
  9. CEPHALEXIN [Concomitant]
  10. NEURONTIN [Concomitant]
  11. PREDNISONE TAB [Concomitant]
  12. CYCLOBENZAPRINE HCL [Concomitant]
  13. REMERON [Concomitant]
  14. PREDNISONE TAB [Concomitant]
  15. PROMETHAZINE [Concomitant]
  16. FUROSEMIDE [Concomitant]
  17. VIOXX [Concomitant]
  18. AMITRIPTLINE HCL [Concomitant]
  19. SONATA [Concomitant]
  20. ZYPREXA [Concomitant]
  21. EFFEXOR XR [Concomitant]
  22. TRIMOX         (SULFAMETHOXAZOLE/TRIMETHOPRIM) [Concomitant]
  23. TRAMADOL HCL [Concomitant]
  24. TRAZODONE HCL [Concomitant]
  25. LYRICA [Concomitant]
  26. FENTANYL [Concomitant]
  27. NORTRIPTYLINE HCL [Concomitant]
  28. ANAPROX [Concomitant]
  29. HYDROCODONE BITARTRATE [Concomitant]

REACTIONS (31)
  - ABDOMINAL PAIN UPPER [None]
  - ABNORMAL DREAMS [None]
  - ARTHRITIS [None]
  - ASTHENIA [None]
  - AUTOIMMUNE DISORDER [None]
  - BONE PAIN [None]
  - BURSITIS [None]
  - CHEST DISCOMFORT [None]
  - COGNITIVE DISORDER [None]
  - CONNECTIVE TISSUE DISORDER [None]
  - FATIGUE [None]
  - GAIT DISTURBANCE [None]
  - GROIN PAIN [None]
  - INFARCTION [None]
  - JOINT CREPITATION [None]
  - JOINT SPRAIN [None]
  - MALAISE [None]
  - MENTAL IMPAIRMENT [None]
  - MIDDLE INSOMNIA [None]
  - MUSCLE ATROPHY [None]
  - MUSCLE RIGIDITY [None]
  - MUSCULOSKELETAL CHEST PAIN [None]
  - MUSCULOSKELETAL PAIN [None]
  - MUSCULOSKELETAL STIFFNESS [None]
  - MYALGIA [None]
  - MYOPATHY [None]
  - NEURALGIC AMYOTROPHY [None]
  - NEUROPATHY PERIPHERAL [None]
  - NEUROPSYCHOLOGICAL TEST ABNORMAL [None]
  - SPINAL OSTEOARTHRITIS [None]
  - VASCULITIS [None]
